FAERS Safety Report 8346713-0 (Version None)
Quarter: 2012Q2

REPORT INFORMATION
  Report Type: 
  Country: None (occurrence: None)
  Receive Date: 20120508
  Receipt Date: 20120508
  Transmission Date: 20120825
  Serious: Yes (Disabling, Other)
  Sender: FDA-Public Use
  Company Number: None

PATIENT
  Age: 57 Year
  Sex: Female
  Weight: 50.9 kg

DRUGS (6)
  1. VITAMIN D [Concomitant]
  2. CRESTOR [Concomitant]
  3. NEURONTIN [Suspect]
     Indication: NERVE INJURY
     Dosage: STEP UP TO 600-800 MG DAILY ORAL
     Route: 048
     Dates: start: 20110201, end: 20111001
  4. NEURONTIN [Suspect]
     Indication: BACK PAIN
     Dosage: STEP UP TO 600-800 MG DAILY ORAL
     Route: 048
     Dates: start: 20110201, end: 20111001
  5. SYNTHROID [Concomitant]
  6. NEURONTIN [Suspect]
     Dosage: STEP UP TO 600-800 MG DAILY ORAL
     Route: 048
     Dates: start: 20110201, end: 20111001

REACTIONS (8)
  - VISION BLURRED [None]
  - VITREOUS FLOATERS [None]
  - BLEPHAROSPASM [None]
  - IMPAIRED DRIVING ABILITY [None]
  - NIGHT BLINDNESS [None]
  - EYE SWELLING [None]
  - MIGRAINE [None]
  - VISUAL IMPAIRMENT [None]
